FAERS Safety Report 8762041 (Version 2)
Quarter: 2012Q4

REPORT INFORMATION
  Report Type: 
  Country: US (occurrence: US)
  Receive Date: 20120829
  Receipt Date: 20121220
  Transmission Date: 20130627
  Serious: Yes (Congenital Anomaly, Other)
  Sender: FDA-Public Use
  Company Number: US-PFIZER INC-2012211229

PATIENT
  Age: 4 Week
  Sex: Male
  Weight: 4 kg

DRUGS (7)
  1. ZOLOFT [Suspect]
     Dosage: UNK
     Route: 064
     Dates: start: 201001, end: 201007
  2. ZOLOFT [Suspect]
     Dosage: 50mg daily, UNK
     Route: 064
     Dates: start: 20100224
  3. PRENATAL VITAMINS [Concomitant]
     Dosage: UNK
     Route: 064
  4. METOCLOPRAMIDE [Concomitant]
     Dosage: 10 mg, 4x/day
     Route: 064
     Dates: start: 20100313
  5. PROCHLORPERAZINE [Concomitant]
     Dosage: 10 mg, 4x/day
     Route: 064
     Dates: start: 20100313
  6. METRONIDAZOLE [Concomitant]
     Dosage: 500 mg, 2x/day
     Route: 064
     Dates: start: 20100314
  7. PROMETHEGAN [Concomitant]
     Dosage: 25 mg, UNK
     Route: 064
     Dates: start: 20100704

REACTIONS (3)
  - Maternal exposure timing unspecified [Unknown]
  - Coarctation of the aorta [Unknown]
  - Bicuspid aortic valve [Unknown]
